FAERS Safety Report 4772257-9 (Version None)
Quarter: 2005Q3

REPORT INFORMATION
  Report Type: 
  Country: None (occurrence: None)
  Receive Date: 20050919
  Receipt Date: 20050428
  Transmission Date: 20060218
  Serious: No
  Sender: FDA-Public Use
  Company Number: US-BRISTOL-MYERS SQUIBB COMPANY-12950929

PATIENT
  Sex: Female
  Weight: 136 kg

DRUGS (1)
  1. DEFINITY [Suspect]
     Indication: ULTRASOUND SCAN
     Route: 040
     Dates: start: 20050428, end: 20050428

REACTIONS (1)
  - PAIN IN EXTREMITY [None]
